FAERS Safety Report 18918109 (Version 1)
Quarter: 2021Q1

REPORT INFORMATION
  Report Type: Spontaneous
  Country: US (occurrence: US)
  Receive Date: 20210219
  Receipt Date: 20210219
  Transmission Date: 20210420
  Serious: Yes (Hospitalization, Disabling, Other)
  Sender: FDA-Public Use
  Company Number: US-009507513-2102USA004918

PATIENT
  Age: 46 Year
  Sex: Male

DRUGS (2)
  1. PROPECIA [Suspect]
     Active Substance: FINASTERIDE
     Indication: ALOPECIA
     Dosage: 1 MILLIGRAM, QD
     Route: 048
     Dates: start: 1999, end: 2006
  2. FINASTERIDE. [Suspect]
     Active Substance: FINASTERIDE
     Indication: ALOPECIA
     Dosage: INVARIABLY CUTTING THEM EQUALLY INTO FOUR 1.25MG PORTIONS, QD
     Route: 048
     Dates: start: 2006, end: 201412

REACTIONS (23)
  - Hallucination [Unknown]
  - Periorbital haemorrhage [Recovered/Resolved]
  - Vertigo [Recovered/Resolved]
  - Eye movement disorder [Recovered/Resolved]
  - Dizziness [Recovered/Resolved]
  - Ataxia [Recovered/Resolved]
  - Feeling abnormal [Unknown]
  - Disturbance in social behaviour [Unknown]
  - Stress [Unknown]
  - Starvation [Recovered/Resolved]
  - Depression [Recovered/Resolved]
  - Post 5-alpha-reductase inhibitor syndrome [Not Recovered/Not Resolved]
  - Feminisation acquired [Recovered/Resolved]
  - Dyssomnia [Not Recovered/Not Resolved]
  - Emotional disorder [Recovered/Resolved]
  - Penile pain [Recovered/Resolved]
  - Diplopia [Recovered/Resolved]
  - Aphonia [Recovering/Resolving]
  - Delusional perception [Recovered/Resolved]
  - Suicidal ideation [Recovered/Resolved]
  - Craniocerebral injury [Unknown]
  - Erectile dysfunction [Recovered/Resolved]
  - Ataxia [Not Recovered/Not Resolved]

NARRATIVE: CASE EVENT DATE: 1999
